FAERS Safety Report 10776672 (Version 1)
Quarter: 2015Q1

REPORT INFORMATION
  Report Type: Spontaneous
  Country: US (occurrence: US)
  Receive Date: 20150209
  Receipt Date: 20150209
  Transmission Date: 20150721
  Serious: No
  Sender: FDA-Public Use
  Company Number: US-GLAXOSMITHKLINE-A1072561A

PATIENT

DRUGS (2)
  1. IMITREX [Suspect]
     Active Substance: SUMATRIPTAN\SUMATRIPTAN SUCCINATE
     Indication: PRODUCT USED FOR UNKNOWN INDICATION
     Dosage: 6MG/5ML
     Route: 065
     Dates: start: 20060612
  2. VALTREX [Suspect]
     Active Substance: VALACYCLOVIR HYDROCHLORIDE
     Indication: PRODUCT USED FOR UNKNOWN INDICATION
     Dosage: 1GRAM
     Route: 065
     Dates: start: 20100329

REACTIONS (4)
  - Speech disorder [Unknown]
  - Laryngitis [Recovered/Resolved]
  - Dysphonia [Unknown]
  - Oropharyngeal pain [Unknown]
